FAERS Safety Report 19388947 (Version 2)
Quarter: 2021Q4

REPORT INFORMATION
  Report Type: Spontaneous
  Country: JP (occurrence: JP)
  Receive Date: 20210608
  Receipt Date: 20211104
  Transmission Date: 20220304
  Serious: Yes (Other)
  Sender: FDA-Public Use
  Company Number: JP-ELI_LILLY_AND_COMPANY-JP202106001080

PATIENT
  Age: 65 Year
  Sex: Male
  Weight: 61 kg

DRUGS (4)
  1. NECITUMUMAB [Suspect]
     Active Substance: NECITUMUMAB
     Indication: Lung carcinoma cell type unspecified stage III
     Dosage: 800 MG
     Route: 041
     Dates: start: 20210420
  2. GEMCITABINE HYDROCHLORIDE [Suspect]
     Active Substance: GEMCITABINE HYDROCHLORIDE
     Indication: Lung carcinoma cell type unspecified stage III
     Dosage: 1200 MG
     Route: 041
     Dates: start: 20210420
  3. CISPLATIN [Suspect]
     Active Substance: CISPLATIN
     Indication: Lung carcinoma cell type unspecified stage III
     Dosage: UNK
     Route: 065
     Dates: start: 20210420
  4. MAGNESIUM SULFATE [Concomitant]
     Active Substance: MAGNESIUM SULFATE
     Dosage: UNK
     Dates: start: 20210420, end: 20210714

REACTIONS (5)
  - Lymphocyte count decreased [Recovering/Resolving]
  - Platelet count decreased [Recovered/Resolved]
  - Dermatitis acneiform [Recovering/Resolving]
  - Neutrophil count decreased [Recovered/Resolved]
  - Anaemia [Recovering/Resolving]

NARRATIVE: CASE EVENT DATE: 20210422
